FAERS Safety Report 4699487-9 (Version None)
Quarter: 2005Q2

REPORT INFORMATION
  Report Type: 
  Country: None (occurrence: None)
  Receive Date: 20050622
  Receipt Date: 20050613
  Transmission Date: 20051028
  Serious: Yes (Death, Life-Threatening, Hospitalization, Congenital Anomaly)
  Sender: FDA-Public Use
  Company Number: 2005EU000936

PATIENT
  Age: 43 Month
  Sex: Female
  Weight: 13.7 kg

DRUGS (14)
  1. PROGRAF [Suspect]
     Indication: LIVER TRANSPLANT
     Dosage: SEE IMAGE
     Route: 042
     Dates: start: 20050501, end: 20050501
  2. PROGRAF [Suspect]
     Indication: LIVER TRANSPLANT
     Dosage: SEE IMAGE
     Route: 042
     Dates: start: 20050501, end: 20050504
  3. PROGRAF [Suspect]
     Indication: LIVER TRANSPLANT
     Dosage: SEE IMAGE
     Route: 042
     Dates: start: 20050505, end: 20050505
  4. PROGRAF [Suspect]
     Indication: LIVER TRANSPLANT
     Dosage: SEE IMAGE
     Route: 042
     Dates: start: 20050506, end: 20050509
  5. PROGRAF [Suspect]
     Indication: LIVER TRANSPLANT
     Dosage: SEE IMAGE
     Route: 042
     Dates: start: 20050510
  6. CORTICOSTEROIDS [Suspect]
     Indication: LIVER TRANSPLANT
     Dosage: SEE IMAGE
     Route: 065
     Dates: start: 20050501, end: 20050501
  7. CORTICOSTEROIDS [Suspect]
     Indication: LIVER TRANSPLANT
     Dosage: SEE IMAGE
     Route: 065
     Dates: start: 20050501, end: 20050505
  8. PIPERACILLIN [Concomitant]
  9. FORTUM (CEFTAZIDIME PENTAHYDRATE) [Concomitant]
  10. VANCOMYCIN [Concomitant]
  11. GANCICLOVIR [Concomitant]
  12. FLAGYL [Concomitant]
  13. AMIKIN [Concomitant]
  14. FUNGIZONE [Concomitant]

REACTIONS (5)
  - CONVULSION [None]
  - DRUG INEFFECTIVE [None]
  - DRUG INTERACTION [None]
  - EPILEPSY [None]
  - IMMUNOSUPPRESSANT DRUG LEVEL INCREASED [None]
